FAERS Safety Report 8768843 (Version 1)
Quarter: 2012Q4

REPORT INFORMATION
  Report Type: 
  Country: TH (occurrence: TH)
  Receive Date: 20120906
  Receipt Date: 20120906
  Transmission Date: 20130627
  Serious: Yes (Other)
  Sender: FDA-Public Use
  Company Number: TH-ROCHE-1105146

PATIENT
  Age: 11 Year
  Sex: Female
  Weight: 43.6 kg

DRUGS (48)
  1. GANCICLOVIR [Suspect]
     Indication: CYTOMEGALOVIRUS INFECTION
     Route: 042
     Dates: start: 20120727
  2. VORICONAZOLE [Suspect]
     Indication: BRONCHOPULMONARY ASPERGILLOSIS
     Dosage: Dose: 9 mg/kg/dose
     Route: 042
     Dates: start: 20120713
  3. VORICONAZOLE [Suspect]
     Dosage: Dose: 8 mg/kg/dose
     Route: 042
  4. VORICONAZOLE [Suspect]
     Route: 048
     Dates: start: 20120813
  5. VITAMIN C [Concomitant]
     Route: 048
     Dates: start: 20120727
  6. BROMHEXINE [Concomitant]
     Indication: PNEUMONIA
     Route: 048
     Dates: start: 20120727
  7. METHYLPREDNISOLONE [Concomitant]
     Indication: SYSTEMIC LUPUS ERYTHEMATOSUS
     Route: 042
     Dates: start: 20120717
  8. DEXTROSE 5% IN WATER [Concomitant]
     Route: 042
     Dates: start: 20120727
  9. DEXTROSE 5% IN WATER [Concomitant]
     Route: 042
     Dates: start: 20120808, end: 20120808
  10. METRONIDAZOLE [Concomitant]
     Route: 042
     Dates: start: 20120801
  11. ACETYLCYSTEINE [Concomitant]
     Indication: PNEUMONIA
     Route: 042
     Dates: start: 20120808, end: 20120808
  12. CREAM BASE [Concomitant]
     Indication: DRY SKIN
     Route: 061
     Dates: start: 20120729, end: 20120802
  13. SUCRALFATE [Concomitant]
     Route: 061
     Dates: start: 20120801, end: 20120802
  14. SUCRALFATE [Concomitant]
     Route: 061
     Dates: start: 20120802, end: 20120808
  15. CLOTRIMAZOLE [Concomitant]
     Route: 061
     Dates: start: 20120803
  16. BEPANTHEN [Concomitant]
     Route: 061
     Dates: start: 20120804
  17. NOVORAPID [Concomitant]
     Indication: HYPERGLYCAEMIA
     Dosage: Dose: 5 unit
     Route: 058
     Dates: start: 20120801, end: 20120801
  18. NOVORAPID [Concomitant]
     Dosage: Dose: 4 unit
     Route: 058
     Dates: start: 20120808, end: 20120808
  19. NOVORAPID [Concomitant]
     Dosage: Dose: 9 unit
     Route: 058
     Dates: start: 20120804, end: 20120804
  20. NOVORAPID [Concomitant]
     Dosage: Dose: 6 unit
     Route: 058
     Dates: start: 20120801, end: 20120801
  21. NOVORAPID [Concomitant]
     Dosage: Dose: 4 unit
     Route: 058
     Dates: start: 20120802, end: 20120802
  22. NOVORAPID [Concomitant]
     Dosage: Dose: 12 unit
     Route: 058
     Dates: start: 20120804, end: 20120804
  23. NOVORAPID [Concomitant]
     Dosage: Dose: 8 unit
     Route: 058
     Dates: start: 20120803, end: 20120803
  24. NOVORAPID [Concomitant]
     Dosage: Dose: 8 unit
     Route: 058
     Dates: start: 20120805, end: 20120808
  25. NOVORAPID [Concomitant]
     Dosage: Dose: 7 unit
     Route: 058
     Dates: start: 20120803, end: 20120803
  26. NOVORAPID [Concomitant]
     Dosage: Dose: 10 unit
     Route: 058
     Dates: start: 20120805, end: 20120805
  27. NOVORAPID [Concomitant]
     Dosage: Dose: 14 unit
     Route: 058
     Dates: start: 20120806, end: 20120806
  28. NOVORAPID [Concomitant]
     Dosage: Dose: 16 unit
     Route: 058
     Dates: start: 20120806, end: 20120806
  29. INSULATARD [Concomitant]
     Indication: HYPERGLYCAEMIA
     Dosage: Dose: 3unit
     Route: 058
     Dates: start: 20120803, end: 20120804
  30. INSULATARD [Concomitant]
     Dosage: Dose: 4unit
     Route: 058
     Dates: start: 20120808, end: 20120808
  31. INSULATARD [Concomitant]
     Dosage: Dose: 14 unit
     Route: 058
     Dates: start: 20120802, end: 20120802
  32. INSULATARD [Concomitant]
     Dosage: Dose: 3 unit
     Route: 058
     Dates: start: 20120802, end: 20120802
  33. INSULATARD [Concomitant]
     Dosage: Dose: 24 unit
     Route: 058
     Dates: start: 20120806, end: 20120806
  34. INSULATARD [Concomitant]
     Dosage: Dose: 12 unit
     Route: 058
     Dates: start: 20120801, end: 20120801
  35. INSULATARD [Concomitant]
     Dosage: Dose: 12 unit
     Route: 058
     Dates: start: 20120808, end: 20120808
  36. INSULATARD [Concomitant]
     Dosage: Dose: 20 unit
     Route: 058
     Dates: start: 20120804, end: 20120804
  37. INSULATARD [Concomitant]
     Dosage: Dose: 2 unit
     Route: 058
     Dates: start: 20120805, end: 20120807
  38. INSULATARD [Concomitant]
     Dosage: Dose: 1 unit
     Route: 058
     Dates: start: 20120801, end: 20120801
  39. INSULATARD [Concomitant]
     Dosage: Dose: 18 unit
     Route: 058
     Dates: start: 20120803, end: 20120803
  40. ALBUMIN 20% [Concomitant]
     Indication: HYPOALBUMINAEMIA
     Route: 042
     Dates: start: 20120805, end: 20120806
  41. LASIX [Concomitant]
     Indication: FLUID OVERLOAD
     Route: 042
     Dates: start: 20120805, end: 20120806
  42. LASIX [Concomitant]
     Route: 042
     Dates: start: 20120806, end: 20120806
  43. LASIX [Concomitant]
     Route: 042
     Dates: start: 20120808, end: 20120808
  44. CHLORPHENIRAMINE [Concomitant]
     Route: 042
     Dates: start: 20120806
  45. CHLORPHENIRAMINE [Concomitant]
     Route: 042
     Dates: start: 20120808, end: 20120808
  46. PARACETAMOL [Concomitant]
     Route: 048
     Dates: start: 20120806, end: 20120806
  47. FLUIMUCIL (THAILAND) [Concomitant]
     Indication: PNEUMONIA
     Route: 048
     Dates: start: 20120807, end: 20120807
  48. LEVETIRACETAM [Concomitant]
     Route: 065
     Dates: start: 20120710

REACTIONS (1)
  - Renal failure acute [Not Recovered/Not Resolved]
